FAERS Safety Report 5444317-0 (Version None)
Quarter: 2007Q3

REPORT INFORMATION
  Report Type: 
  Country: None (occurrence: None)
  Receive Date: 20070906
  Receipt Date: 20070905
  Transmission Date: 20080115
  Serious: Yes (Hospitalization)
  Sender: FDA-Public Use
  Company Number: FR-BRISTOL-MYERS SQUIBB COMPANY-13888532

PATIENT
  Age: 61 Year
  Sex: Male

DRUGS (6)
  1. AMIKLIN [Suspect]
     Indication: FEBRILE NEUTROPENIA
     Route: 042
     Dates: start: 20070516, end: 20070517
  2. CIFLOX [Suspect]
     Indication: FEBRILE NEUTROPENIA
     Route: 042
     Dates: start: 20070516, end: 20070524
  3. LASIX [Suspect]
     Route: 042
     Dates: start: 20070518, end: 20070518
  4. ALKERAN [Suspect]
     Indication: MULTIPLE MYELOMA
     Route: 042
     Dates: start: 20070511, end: 20070511
  5. TAZOCILLINE [Concomitant]
     Indication: FEBRILE NEUTROPENIA
     Route: 042
     Dates: start: 20070516, end: 20070524
  6. ALLOPURINOL [Concomitant]
     Route: 048

REACTIONS (5)
  - ANURIA [None]
  - CONFUSIONAL STATE [None]
  - DISORIENTATION [None]
  - OEDEMA PERIPHERAL [None]
  - RENAL FAILURE ACUTE [None]
